FAERS Safety Report 5806610-9 (Version None)
Quarter: 2008Q3

REPORT INFORMATION
  Report Type: 
  Country: None (occurrence: None)
  Receive Date: 20080710
  Receipt Date: 20080701
  Transmission Date: 20090109
  Serious: Yes (Hospitalization, Other)
  Sender: FDA-Public Use
  Company Number: PHBS2008GR04992

PATIENT
  Age: 40 Year
  Sex: Female

DRUGS (6)
  1. ERGOTAMINE TARTRATE [Suspect]
     Indication: HEADACHE
  2. NARATRIPTAN [Concomitant]
  3. SUMATRIPTAN SUCCINATE [Concomitant]
  4. RIZATRIPTAN BENZOATE [Concomitant]
  5. FROVATRIPTAN [Concomitant]
  6. CAFFEINE [Concomitant]

REACTIONS (17)
  - ANGIOGRAM [None]
  - ANGIOPLASTY [None]
  - ASTHENIA [None]
  - CARDIAC DISORDER [None]
  - CAROTID ARTERY STENOSIS [None]
  - CYANOSIS [None]
  - FEMORAL ARTERY OCCLUSION [None]
  - HEADACHE [None]
  - HYPOAESTHESIA [None]
  - INCORRECT DRUG ADMINISTRATION DURATION [None]
  - ISCHAEMIA [None]
  - MUSCLE SPASMS [None]
  - NERVOUS SYSTEM DISORDER [None]
  - NUCLEAR MAGNETIC RESONANCE IMAGING ABNORMAL [None]
  - PERIPHERAL ARTERIAL OCCLUSIVE DISEASE [None]
  - RENAL ARTERY STENOSIS [None]
  - SENSORY DISTURBANCE [None]
